FAERS Safety Report 5386108-5 (Version None)
Quarter: 2007Q3

REPORT INFORMATION
  Report Type: 
  Country: None (occurrence: None)
  Receive Date: 20070710
  Receipt Date: 20070627
  Transmission Date: 20080115
  Serious: Yes (Hospitalization)
  Sender: FDA-Public Use
  Company Number: 02100-JPN-07-0314

PATIENT
  Age: 80 Year
  Sex: Female

DRUGS (11)
  1. CILOSTAZOL [Suspect]
     Indication: CEREBRAL INFARCTION
     Dosage: ONE OF 200 MG
     Route: 048
     Dates: start: 20070404
  2. CLOPIDOGREL [Suspect]
     Indication: CEREBRAL INFARCTION
     Dosage: 75 MG, ORAL
     Route: 048
     Dates: start: 20070404
  3. ASPIRIN [Concomitant]
  4. MAGNESIUM OXIDE [Concomitant]
  5. METFORMIN HYDROCHLORIDE [Concomitant]
  6. ESCITALOPRAM OXALATE [Concomitant]
  7. IRBESARTAN [Concomitant]
  8. CALCIUM  POLYCARBOPHIL [Concomitant]
  9. AMOBARBITAL SODIUM [Concomitant]
  10. KETOPROFEN [Concomitant]
  11. AMLODIPINE MALEATE [Concomitant]

REACTIONS (4)
  - ABNORMAL BEHAVIOUR [None]
  - MEMORY IMPAIRMENT [None]
  - ORAL INTAKE REDUCED [None]
  - POLLAKIURIA [None]
